FAERS Safety Report 4475413-2 (Version None)
Quarter: 2004Q4

REPORT INFORMATION
  Report Type: 
  Country: None (occurrence: None)
  Receive Date: 20041015
  Receipt Date: 20041004
  Transmission Date: 20050328
  Serious: Yes (Death, Hospitalization)
  Sender: FDA-Public Use
  Company Number: NO-JNJFOC-20041002847

PATIENT
  Sex: Male

DRUGS (7)
  1. REMINYL [Suspect]
     Indication: DEMENTIA
     Route: 049
     Dates: start: 20040625, end: 20040712
  2. APOCILLIN [Concomitant]
     Route: 049
     Dates: start: 20040711, end: 20040717
  3. MEVACOR [Concomitant]
     Route: 049
     Dates: start: 19970101
  4. DAONIL [Concomitant]
     Indication: DIABETES MELLITUS
     Route: 049
  5. GLUCOPHAGE [Concomitant]
     Indication: DIABETES MELLITUS
     Route: 065
  6. MAREVAN [Concomitant]
     Indication: ATRIAL FLUTTER
     Route: 049
  7. ENALAPRIL MALEATE [Concomitant]
     Indication: HYPERTENSION
     Route: 065

REACTIONS (12)
  - ABDOMINAL PAIN [None]
  - ACUTE MYOCARDIAL INFARCTION [None]
  - AGITATION [None]
  - ATRIAL FLUTTER [None]
  - BLOOD PRESSURE INCREASED [None]
  - BODY TEMPERATURE INCREASED [None]
  - CONFUSIONAL STATE [None]
  - INTERNATIONAL NORMALISED RATIO INCREASED [None]
  - MYOCARDIAL INFARCTION [None]
  - PLEURAL EFFUSION [None]
  - PNEUMONIA [None]
  - PYREXIA [None]
